FAERS Safety Report 25166468 (Version 1)
Quarter: 2025Q2

REPORT INFORMATION
  Report Type: Spontaneous
  Country: US (occurrence: US)
  Receive Date: 20250407
  Receipt Date: 20250407
  Transmission Date: 20250716
  Serious: No
  Sender: ROCHE
  Company Number: US-ROCHE-10000241742

PATIENT
  Age: 74 Year
  Sex: Male

DRUGS (2)
  1. RITUXIMAB [Suspect]
     Active Substance: RITUXIMAB
     Indication: Product used for unknown indication
     Route: 065
     Dates: start: 202503
  2. RUXIENCE [Suspect]
     Active Substance: RITUXIMAB-PVVR
     Indication: Product used for unknown indication
     Route: 065
     Dates: start: 202503

REACTIONS (1)
  - Skin exfoliation [Unknown]
